FAERS Safety Report 6305194-9 (Version None)
Quarter: 2009Q3

REPORT INFORMATION
  Report Type: 
  Country: None (occurrence: None)
  Receive Date: 20090811
  Receipt Date: 20090731
  Transmission Date: 20100115
  Serious: Yes (Hospitalization, Other)
  Sender: FDA-Public Use
  Company Number: JP-SANOFI-SYNTHELABO-F01200900733

PATIENT
  Sex: Female
  Weight: 64 kg

DRUGS (18)
  1. INSULIN DETEMIR [Concomitant]
     Dosage: 6-20 V, BID
     Route: 058
  2. NOVORAPID [Concomitant]
     Dosage: 33-18-24 V, TID
     Route: 058
  3. KREMEZIN [Concomitant]
     Dosage: TID
     Route: 048
  4. FRANDOL [Concomitant]
     Indication: ANGINA UNSTABLE
     Dosage: 1 SHEET
     Route: 065
  5. ALDACTONE [Concomitant]
     Route: 048
  6. LASIX [Concomitant]
     Route: 048
  7. SIGMART [Concomitant]
     Indication: ANGINA UNSTABLE
     Route: 048
  8. LIPITOR [Concomitant]
     Dosage: 10 MG
     Route: 048
  9. CALSLOT [Concomitant]
     Route: 048
  10. CARDENALIN [Concomitant]
     Dosage: 2 MG
     Route: 048
  11. OMEPRAL [Concomitant]
     Dosage: 10 MG
     Route: 048
  12. FLUITRAN [Concomitant]
     Dosage: 2 MG
     Route: 048
  13. TENORMIN [Concomitant]
     Indication: ANGINA UNSTABLE
     Dosage: 50 MG
     Route: 048
  14. CANDESARTAN CILEXETIL [Concomitant]
     Route: 048
  15. HEPARIN [Concomitant]
     Indication: ANGINA UNSTABLE
     Dosage: 10000 UNIT
     Route: 042
     Dates: start: 20081201, end: 20081217
  16. ASPIRIN [Concomitant]
     Indication: ANGINA UNSTABLE
     Dosage: 100 MG
     Route: 048
     Dates: start: 19990101
  17. CLOPIDOGREL [Suspect]
     Indication: ACUTE CORONARY SYNDROME
     Dosage: STARTING DOSE 300 MG
     Route: 048
     Dates: start: 20081218, end: 20081218
  18. CLOPIDOGREL [Suspect]
     Dosage: MAINTENANCE DOSE
     Route: 048
     Dates: start: 20081219

REACTIONS (3)
  - BLOOD CREATININE INCREASED [None]
  - BLOOD UREA INCREASED [None]
  - NEPHROGENIC ANAEMIA [None]
